FAERS Safety Report 11157779 (Version 2)
Quarter: 2015Q2

REPORT INFORMATION
  Report Type: Report from Study
  Country: GB (occurrence: None)
  Receive Date: 20150601
  Receipt Date: 20150605
  Transmission Date: 20150821
  Serious: Yes (Life-Threatening, Hospitalization)
  Sender: FDA-Public Use
  Company Number: 2015SGN00855

PATIENT
  Age: 77 Year
  Sex: Male
  Weight: 74.4 kg

DRUGS (2)
  1. VERAPAMIL [Concomitant]
     Active Substance: VERAPAMIL HYDROCHLORIDE
  2. BRENTUXIMAB VEDOTIN (BRENTUXIMAB VEDOTIN) INJECTION [Suspect]
     Active Substance: BRENTUXIMAB VEDOTIN
     Indication: ANAPLASTIC LARGE CELL LYMPHOMA T- AND NULL-CELL TYPES
     Route: 042
     Dates: start: 20150225, end: 20150320

REACTIONS (7)
  - Infection [None]
  - Respiratory symptom [None]
  - Dyspnoea [None]
  - Cerebral ischaemia [None]
  - Orthostatic hypotension [None]
  - Transient ischaemic attack [None]
  - Atrial fibrillation [None]

NARRATIVE: CASE EVENT DATE: 20150513
